FAERS Safety Report 5245604-1 (Version None)
Quarter: 2007Q1

REPORT INFORMATION
  Report Type: 
  Country: None (occurrence: None)
  Receive Date: 20070223
  Receipt Date: 20070211
  Transmission Date: 20070707
  Serious: Yes (Hospitalization)
  Sender: FDA-Public Use
  Company Number: US-PFIZER INC-2007011358

PATIENT
  Sex: Female
  Weight: 143.8 kg

DRUGS (6)
  1. LYRICA [Suspect]
     Indication: NEURALGIA
     Dates: start: 20070202, end: 20070204
  2. TOPROL-XL [Concomitant]
  3. GLIPIZIDE [Concomitant]
  4. NORCO [Concomitant]
  5. CYMBALTA [Concomitant]
  6. AVANDIA [Concomitant]

REACTIONS (2)
  - JOINT SWELLING [None]
  - OEDEMA PERIPHERAL [None]
